FAERS Safety Report 7929495-3 (Version None)
Quarter: 2011Q4

REPORT INFORMATION
  Report Type: 
  Country: None (occurrence: None)
  Receive Date: 20111121
  Receipt Date: 20111019
  Transmission Date: 20120403
  Serious: No
  Sender: FDA-Public Use
  Company Number: US-BAYER-2011-054293

PATIENT
  Sex: Female

DRUGS (2)
  1. MIRENA [Suspect]
     Dosage: UNK
     Dates: start: 20100723, end: 20100723
  2. MIRENA [Suspect]
     Dosage: UNK
     Dates: start: 20100723, end: 20100723

REACTIONS (4)
  - DEVICE DIFFICULT TO USE [None]
  - PROCEDURAL PAIN [None]
  - FRUSTRATION [None]
  - DEVICE BREAKAGE [None]
